FAERS Safety Report 23858393 (Version 1)
Quarter: 2024Q2

REPORT INFORMATION
  Report Type: Spontaneous
  Country: US (occurrence: None)
  Receive Date: 20240515
  Receipt Date: 20240515
  Transmission Date: 20240716
  Serious: Yes (Hospitalization)
  Sender: FDA-Public Use
  Company Number: None

PATIENT
  Age: 70 Year
  Sex: Female

DRUGS (1)
  1. BUDESONIDE\FORMOTEROL [Suspect]
     Active Substance: BUDESONIDE\FORMOTEROL
     Indication: Drug therapy
     Dosage: 2 PUFFS BID INHALE? ?
     Route: 055
     Dates: start: 20231201, end: 20240102

REACTIONS (1)
  - Cough [None]

NARRATIVE: CASE EVENT DATE: 20240102
